FAERS Safety Report 8370268-8 (Version None)
Quarter: 2012Q2

REPORT INFORMATION
  Report Type: 
  Country: None (occurrence: None)
  Receive Date: 20120518
  Receipt Date: 20110504
  Transmission Date: 20120825
  Serious: No
  Sender: FDA-Public Use
  Company Number: US-ASTRAZENECA-2011SE27149

PATIENT
  Sex: Female

DRUGS (3)
  1. HORMONES NOS [Concomitant]
     Dosage: UNKNOWN
  2. PRILOSEC OTC [Suspect]
     Route: 048
     Dates: start: 20110405, end: 20110430
  3. ASPIRIN [Concomitant]
     Dosage: UNKNOWN

REACTIONS (2)
  - THROAT IRRITATION [None]
  - STOMATITIS [None]
